FAERS Safety Report 19200000 (Version 1)
Quarter: 2021Q2

REPORT INFORMATION
  Report Type: Spontaneous
  Country: CA (occurrence: CA)
  Receive Date: 20210430
  Receipt Date: 20210430
  Transmission Date: 20210717
  Serious: Yes (Death, Life-Threatening, Hospitalization, Disabling)
  Sender: FDA-Public Use
  Company Number: CA-TEVA-2021-CA-1905461

PATIENT
  Age: 67 Year
  Sex: Female
  Weight: 92 kg

DRUGS (28)
  1. ASAPHEN EC [Concomitant]
  2. HALOPERIDOL. [Concomitant]
     Active Substance: HALOPERIDOL
  3. HYDROMORPHONE [Concomitant]
     Active Substance: HYDROMORPHONE
  4. NOVORAPID [Concomitant]
     Active Substance: INSULIN ASPART
  5. ONDANSETRON [Concomitant]
     Active Substance: ONDANSETRON
  6. DICLOFENAC [Concomitant]
     Active Substance: DICLOFENAC
  7. METOPROLOL. [Concomitant]
     Active Substance: METOPROLOL
     Route: 065
  8. PANTOPRAZOLE [Concomitant]
     Active Substance: PANTOPRAZOLE
  9. PROCHLORPERAZINE. [Concomitant]
     Active Substance: PROCHLORPERAZINE
  10. CARBOPLATIN INJECTION BP [Suspect]
     Active Substance: CARBOPLATIN
     Indication: BREAST CANCER METASTATIC
     Route: 042
  11. DEXAMETHASONE. [Concomitant]
     Active Substance: DEXAMETHASONE
     Route: 065
  12. GLYBURIDE. [Concomitant]
     Active Substance: GLYBURIDE
  13. K?DUR [Concomitant]
     Active Substance: POTASSIUM CHLORIDE
  14. SITAGLIPTIN ABZ [Concomitant]
     Active Substance: SITAGLIPTIN
  15. ACCURETIC [Concomitant]
     Active Substance: HYDROCHLOROTHIAZIDE\QUINAPRIL HYDROCHLORIDE
  16. ASPIRIN. [Concomitant]
     Active Substance: ASPIRIN
  17. CYCLOBENZAPRINE. [Concomitant]
     Active Substance: CYCLOBENZAPRINE
  18. AMLODIPINE [Concomitant]
     Active Substance: AMLODIPINE BESYLATE
  19. METFORMIN/SITAGLIPTINE [Concomitant]
  20. PREGABALIN. [Concomitant]
     Active Substance: PREGABALIN
  21. TRESIBA [Concomitant]
     Active Substance: INSULIN DEGLUDEC
  22. GEMCITABINE FOR INJECTION SINGLE?USE VIAL [Suspect]
     Active Substance: GEMCITABINE
     Indication: BREAST CANCER METASTATIC
     Route: 042
  23. LORAZEPAM. [Concomitant]
     Active Substance: LORAZEPAM
  24. ROSUVASTATIN. [Concomitant]
     Active Substance: ROSUVASTATIN
     Route: 065
  25. VALSARTAN AND HYDROCHLOROTHIAZIDE [Concomitant]
     Active Substance: HYDROCHLOROTHIAZIDE\VALSARTAN
  26. AMITRIPTYLINE [Concomitant]
     Active Substance: AMITRIPTYLINE
  27. CITALOPRAM [Concomitant]
     Active Substance: CITALOPRAM HYDROBROMIDE
  28. CLOTRIMAZOLE CREAM USP 1% [Concomitant]

REACTIONS (3)
  - Anaphylactic shock [Fatal]
  - Loss of consciousness [Fatal]
  - Cardio-respiratory arrest [Fatal]
